FAERS Safety Report 9424469 (Version 1)
Quarter: 2013Q3

REPORT INFORMATION
  Report Type: Spontaneous
  Country: GB (occurrence: GB)
  Receive Date: 20130729
  Receipt Date: 20130729
  Transmission Date: 20140515
  Serious: Yes (Hospitalization)
  Sender: FDA-Public Use
  Company Number: GB-MYLANLABS-2013S1016077

PATIENT
  Age: 71 Year
  Sex: Male

DRUGS (16)
  1. DRONEDARONE [Suspect]
     Indication: ATRIAL FIBRILLATION
     Route: 065
  2. SOTALOL [Suspect]
     Indication: ATRIAL FIBRILLATION
     Route: 065
  3. BISOPROLOL [Suspect]
     Indication: ATRIAL FIBRILLATION
     Route: 065
  4. DIGOXIN [Suspect]
     Indication: ATRIAL FIBRILLATION
     Route: 065
  5. DIGOXIN [Suspect]
     Indication: ATRIAL FIBRILLATION
     Route: 065
  6. ATORVASTATIN [Concomitant]
     Route: 065
  7. ATORVASTATIN [Concomitant]
     Route: 065
  8. ALLOPURINOL [Concomitant]
     Route: 065
  9. FINASTERIDE [Concomitant]
     Route: 065
  10. METFORMIN [Concomitant]
     Route: 065
  11. GAVISCON ADVANCE [Concomitant]
     Dosage: 10ML AS NEEDED
     Route: 065
  12. OMACOR [Concomitant]
     Route: 065
  13. CANDESARTAN CILEXETIL [Concomitant]
     Route: 065
  14. DOXAZOSIN [Concomitant]
     Route: 065
  15. SPIRONOLACTONE [Concomitant]
     Route: 065
  16. WARFARIN [Concomitant]
     Dosage: ABOUT 3.75MG ONCE DAILY, ACCORDING TO INR
     Route: 065

REACTIONS (7)
  - Diarrhoea [Recovered/Resolved]
  - Bradycardia [Recovering/Resolving]
  - Hypotension [Recovering/Resolving]
  - Renal failure acute [Recovering/Resolving]
  - International normalised ratio increased [Unknown]
  - Xanthopsia [Unknown]
  - Toxicity to various agents [Unknown]
